FAERS Safety Report 7472217-3 (Version None)
Quarter: 2011Q2

REPORT INFORMATION
  Report Type: 
  Country: None (occurrence: None)
  Receive Date: 20110511
  Receipt Date: 20110309
  Transmission Date: 20111010
  Serious: No
  Sender: FDA-Public Use
  Company Number: A0919022A

PATIENT
  Sex: Female

DRUGS (2)
  1. TYKERB [Suspect]
     Dosage: 250MG UNKNOWN
  2. XELODA [Suspect]
     Dosage: 1300MG PER DAY
     Route: 048

REACTIONS (3)
  - INCREASED TENDENCY TO BRUISE [None]
  - DRY SKIN [None]
  - RASH [None]
